FAERS Safety Report 8005207-2 (Version None)
Quarter: 2011Q4

REPORT INFORMATION
  Report Type: 
  Country: None (occurrence: None)
  Receive Date: 20111223
  Receipt Date: 20111220
  Transmission Date: 20120403
  Serious: Yes (Death, Other)
  Sender: FDA-Public Use
  Company Number: PHHY2011JP107287

PATIENT
  Age: 67 Year
  Sex: Female

DRUGS (7)
  1. METHYLPREDNISOLONE [Concomitant]
     Dosage: 1000 MG, UNK
  2. CYCLOSPORINE [Suspect]
     Indication: PARANEOPLASTIC PEMPHIGUS
     Dosage: 5 MG/KG, DAILY
     Dates: end: 20040101
  3. ITRACONAZOLE [Concomitant]
     Dosage: 100 MG, DAILY
  4. PREDNISOLONE [Concomitant]
     Dosage: 20 MG, QD
  5. TACROLIMUS [Concomitant]
     Dosage: 0.1 %, UNK
     Route: 061
  6. PREDNISOLONE [Concomitant]
     Dosage: 60 MG, QD
  7. PREDNISOLONE [Concomitant]
     Dosage: 15 MG, QD

REACTIONS (24)
  - ATELECTASIS [None]
  - ALTERNARIA INFECTION [None]
  - RESPIRATORY DISTRESS [None]
  - CONJUNCTIVITIS [None]
  - CORNEAL PERFORATION [None]
  - RASH [None]
  - FUNGAL SKIN INFECTION [None]
  - SUBCUTANEOUS ABSCESS [None]
  - BLISTER [None]
  - BRONCHOSPASM [None]
  - DYSPNOEA [None]
  - CYTOMEGALOVIRUS INFECTION [None]
  - RENAL IMPAIRMENT [None]
  - LYMPHOCYTIC LYMPHOMA [None]
  - PNEUMONIA [None]
  - LYMPHADENOPATHY [None]
  - RESPIRATORY FAILURE [None]
  - ERYTHEMA [None]
  - OBLITERATIVE BRONCHIOLITIS [None]
  - BRONCHIAL WALL THICKENING [None]
  - ULCERATIVE KERATITIS [None]
  - SKIN ULCER [None]
  - STOMATITIS [None]
  - PAIN OF SKIN [None]
